FAERS Safety Report 16600249 (Version 2)
Quarter: 2019Q3

REPORT INFORMATION
  Report Type: Spontaneous
  Country: US (occurrence: US)
  Receive Date: 20190720
  Receipt Date: 20190803
  Transmission Date: 20191004
  Serious: Yes (Other)
  Sender: FDA-Public Use
  Company Number: US-AUROBINDO-AUR-APL-2019-041895

PATIENT

DRUGS (1)
  1. ONDANSETRON ORALLY DISINTEGRATING TABLETS USP 4 MG [Suspect]
     Active Substance: ONDANSETRON
     Indication: PRODUCT USED FOR UNKNOWN INDICATION
     Dosage: UNK
     Route: 048

REACTIONS (1)
  - Coeliac disease [Unknown]
